FAERS Safety Report 7680836 (Version 4)
Quarter: 2013Q3

REPORT INFORMATION
  Report Type: Spontaneous
  Country: LT (occurrence: LT)
  Receive Date: 20101123
  Receipt Date: 20130830
  Transmission Date: 20140515
  Serious: Yes (Disabling, Other)
  Sender: FDA-Public Use
  Company Number: PHHY2010LT75844

PATIENT
  Age: 45 Year
  Sex: Male

DRUGS (2)
  1. GLIVEC [Suspect]
     Indication: GASTROINTESTINAL STROMAL TUMOUR
     Dosage: 400 MG, QD
     Route: 048
     Dates: start: 200603, end: 201301
  2. SORAFENIB [Concomitant]
     Indication: METASTASES TO LIVER
     Dosage: UNK UKN, UNK
     Dates: end: 201303

REACTIONS (6)
  - Motor neurone disease [Not Recovered/Not Resolved]
  - Paraneoplastic syndrome [Not Recovered/Not Resolved]
  - Amyotrophic lateral sclerosis [Not Recovered/Not Resolved]
  - Muscular weakness [Unknown]
  - Respiratory disorder [Unknown]
  - Blood creatine phosphokinase increased [Unknown]
